FAERS Safety Report 6266849-8 (Version None)
Quarter: 2009Q3

REPORT INFORMATION
  Report Type: 
  Country: None (occurrence: None)
  Receive Date: 20090714
  Receipt Date: 20090706
  Transmission Date: 20100115
  Serious: Yes (Death)
  Sender: FDA-Public Use
  Company Number: JP-JNJFOC-20090607061

PATIENT
  Sex: Female

DRUGS (8)
  1. DUROTEP MT PATCH [Suspect]
     Indication: CANCER PAIN
     Route: 062
  2. FENTANYL CITRATE [Concomitant]
     Route: 058
  3. FENTANYL CITRATE [Concomitant]
     Indication: CANCER PAIN
     Route: 058
  4. CERCINE [Concomitant]
     Indication: INSOMNIA
     Dosage: PERORAL MEDICINE
     Route: 048
  5. DECADRON [Concomitant]
     Indication: MALAISE
     Route: 042
  6. DECADRON [Concomitant]
     Route: 058
  7. GAMOFA [Concomitant]
     Indication: PROPHYLAXIS
     Route: 042
  8. NAUZELIN [Concomitant]
     Indication: NAUSEA
     Dosage: P.R.N
     Route: 054

REACTIONS (3)
  - BREAST CANCER [None]
  - DRUG PRESCRIBING ERROR [None]
  - HEPATIC FAILURE [None]
